FAERS Safety Report 9101015 (Version 2)
Quarter: 2013Q1

REPORT INFORMATION
  Report Type: Report from Study
  Country: CA (occurrence: CA)
  Receive Date: 20130115
  Receipt Date: 20130115
  Transmission Date: 20140127
  Serious: Yes (Other)
  Sender: FDA-Public Use
  Company Number: CA-ROCHE-1016506

PATIENT
  Sex: Male
  Weight: 90 kg

DRUGS (7)
  1. TOCILIZUMAB [Suspect]
     Indication: RHEUMATOID ARTHRITIS
     Route: 042
     Dates: start: 20110418, end: 20111006
  2. ARAVA [Concomitant]
     Route: 065
  3. PLAQUENIL [Concomitant]
     Route: 065
  4. SULFASALAZINE [Concomitant]
     Route: 065
  5. TYLENOL #3 (CANADA) [Concomitant]
     Route: 065
  6. METHOTREXATE [Concomitant]
  7. PREDNISONE [Concomitant]

REACTIONS (3)
  - Hernia [Recovering/Resolving]
  - Pain in extremity [Not Recovered/Not Resolved]
  - Weight increased [Not Recovered/Not Resolved]
